FAERS Safety Report 5843327-9 (Version None)
Quarter: 2008Q3

REPORT INFORMATION
  Report Type: 
  Country: None (occurrence: None)
  Receive Date: 20080813
  Receipt Date: 20080807
  Transmission Date: 20090109
  Serious: Yes (Hospitalization)
  Sender: FDA-Public Use
  Company Number: BE-SANOFI-SYNTHELABO-A01200809382

PATIENT
  Sex: Male
  Weight: 96 kg

DRUGS (5)
  1. TEMESTA [Concomitant]
     Dosage: 1 MG
  2. ASPIRIN [Concomitant]
     Dosage: 100 MG
     Route: 048
  3. ELOXATIN [Suspect]
     Indication: METASTASES TO LIVER
     Dosage: UNK
     Route: 042
     Dates: start: 20080701, end: 20080701
  4. EFFEXOR [Concomitant]
     Dosage: 75 MG
     Route: 048
  5. INDAPAMIDE [Concomitant]
     Dosage: 1 DF
     Route: 048

REACTIONS (4)
  - CARDIO-RESPIRATORY ARREST [None]
  - CIRCULATORY COLLAPSE [None]
  - EPILEPSY [None]
  - ISCHAEMIA [None]
